FAERS Safety Report 6493266-8 (Version None)
Quarter: 2009Q4

REPORT INFORMATION
  Report Type: 
  Country: None (occurrence: None)
  Receive Date: 20091214
  Receipt Date: 20091204
  Transmission Date: 20100525
  Serious: Yes (Other)
  Sender: FDA-Public Use
  Company Number: US-JNJFOC-20091202561

PATIENT
  Sex: Male

DRUGS (2)
  1. TYLENOL (CAPLET) [Suspect]
     Indication: ARTHRALGIA
  2. TYLENOL (CAPLET) [Suspect]
     Indication: ARTHRITIS

REACTIONS (3)
  - DYSPHAGIA [None]
  - PHARYNGEAL HAEMORRHAGE [None]
  - PRODUCT QUALITY ISSUE [None]
